FAERS Safety Report 25643529 (Version 2)
Quarter: 2025Q4

REPORT INFORMATION
  Report Type: Report from Study
  Country: US (occurrence: US)
  Receive Date: 20250805
  Receipt Date: 20251208
  Transmission Date: 20260117
  Serious: Yes (Other)
  Sender: ALEXION PHARMACEUTICALS
  Company Number: US-AstraZeneca-CH-00920921A

PATIENT
  Sex: Female

DRUGS (2)
  1. ULTOMIRIS [Suspect]
     Active Substance: RAVULIZUMAB-CWVZ
     Indication: Myasthenia gravis
     Dosage: UNK
  2. DIETARY SUPPLEMENT [Suspect]
     Active Substance: DIETARY SUPPLEMENT
     Dosage: UNK
     Route: 065

REACTIONS (7)
  - Mixed connective tissue disease [Unknown]
  - Spinal synovial cyst [Unknown]
  - Muscular weakness [Unknown]
  - Therapy non-responder [Unknown]
  - Asthenia [Unknown]
  - Exostosis [Unknown]
  - Nerve compression [Unknown]

NARRATIVE: CASE EVENT DATE: 20150101
